FAERS Safety Report 10169216 (Version 1)
Quarter: 2014Q2

REPORT INFORMATION
  Report Type: Spontaneous
  Country: US (occurrence: US)
  Receive Date: 20140513
  Receipt Date: 20140513
  Transmission Date: 20141212
  Serious: No
  Sender: FDA-Public Use
  Company Number: US-DRREDDYS-USA/USA/13/0028970

PATIENT
  Age: 48 Year
  Sex: Female
  Weight: 55.39 kg

DRUGS (1)
  1. FEXOFENADINE HYDROCHLORIDE AND PSEUDOEPHEDRINE HYDROCHLORIDE EXTENDED [Suspect]
     Indication: RHINITIS ALLERGIC
     Route: 048
     Dates: start: 20130407, end: 20130409

REACTIONS (2)
  - Rash [Not Recovered/Not Resolved]
  - Pruritus [Not Recovered/Not Resolved]
